FAERS Safety Report 7035661-4 (Version None)
Quarter: 2010Q4

REPORT INFORMATION
  Report Type: 
  Country: None (occurrence: None)
  Receive Date: 20101008
  Receipt Date: 20101001
  Transmission Date: 20110411
  Serious: Yes (Disabling)
  Sender: FDA-Public Use
  Company Number: CA-MERCK-1010USA00390

PATIENT
  Age: 51 Year
  Sex: Female
  Weight: 52 kg

DRUGS (5)
  1. FOSAMAX [Suspect]
     Route: 048
  2. NEXIUM [Concomitant]
     Route: 048
  3. REMICADE [Concomitant]
     Route: 065
  4. TUMS [Concomitant]
     Route: 048
  5. VITAMIN D (UNSPECIFIED) [Concomitant]
     Route: 065

REACTIONS (8)
  - ABASIA [None]
  - ABDOMINAL PAIN [None]
  - ANGINA PECTORIS [None]
  - ARTHRALGIA [None]
  - COLITIS ULCERATIVE [None]
  - CONDITION AGGRAVATED [None]
  - DEFAECATION URGENCY [None]
  - HYPERHIDROSIS [None]
